FAERS Safety Report 4470874-7 (Version None)
Quarter: 2004Q4

REPORT INFORMATION
  Report Type: 
  Country: None (occurrence: None)
  Receive Date: 20041011
  Receipt Date: 20040930
  Transmission Date: 20050328
  Serious: Yes (Other)
  Sender: FDA-Public Use
  Company Number: PHNU2004DE03392

PATIENT
  Sex: Female

DRUGS (2)
  1. ZOMETA [Suspect]
     Route: 042
     Dates: start: 20010101
  2. CHEMOTHERAPEUTICS,OTHER [Concomitant]
     Route: 042

REACTIONS (3)
  - HYPOAESTHESIA [None]
  - OSTEOLYSIS [None]
  - OSTEONECROSIS [None]
